FAERS Safety Report 6145423-8 (Version None)
Quarter: 2009Q2

REPORT INFORMATION
  Report Type: 
  Country: None (occurrence: None)
  Receive Date: 20090402
  Receipt Date: 20090323
  Transmission Date: 20091009
  Serious: Yes (Hospitalization)
  Sender: FDA-Public Use
  Company Number: 2009S1005048

PATIENT
  Age: 80 Year
  Sex: Male

DRUGS (1)
  1. IPRATROPIUM BROMIDE [Suspect]
     Indication: DYSPNOEA
     Dosage: INHALATION
     Route: 055

REACTIONS (3)
  - DRUG INEFFECTIVE [None]
  - DYSPNOEA [None]
  - PRODUCT QUALITY ISSUE [None]
